FAERS Safety Report 13343711 (Version 2)
Quarter: 2017Q2

REPORT INFORMATION
  Report Type: Spontaneous
  Country: US (occurrence: US)
  Receive Date: 20170316
  Receipt Date: 20170404
  Transmission Date: 20170830
  Serious: Yes (Other)
  Sender: FDA-Public Use
  Company Number: US-PFIZER INC-2017108372

PATIENT
  Age: 38 Year
  Sex: Male
  Weight: 56.7 kg

DRUGS (15)
  1. SUBOXONE [Concomitant]
     Active Substance: BUPRENORPHINE HYDROCHLORIDE\NALOXONE HYDROCHLORIDE
     Dosage: 0.5 DF, 4X/DAY
  2. GABAPENTIN. [Concomitant]
     Active Substance: GABAPENTIN
     Indication: NEUROPATHY PERIPHERAL
  3. LYRICA [Suspect]
     Active Substance: PREGABALIN
     Indication: DEPRESSION
     Dosage: 200 MG, 3X/DAY
  4. LYRICA [Suspect]
     Active Substance: PREGABALIN
     Indication: NEURALGIA
  5. PERCOCET [Concomitant]
     Active Substance: ACETAMINOPHEN\OXYCODONE HYDROCHLORIDE
     Indication: INTERVERTEBRAL DISC PROTRUSION
  6. SUBOXONE [Concomitant]
     Active Substance: BUPRENORPHINE HYDROCHLORIDE\NALOXONE HYDROCHLORIDE
     Indication: PAIN
     Dosage: 8.2 UNK, 2X/DAY
  7. ADDERALL [Concomitant]
     Active Substance: AMPHETAMINE ASPARTATE\AMPHETAMINE SULFATE\DEXTROAMPHETAMINE SACCHARATE\DEXTROAMPHETAMINE SULFATE
     Dosage: UNK
  8. LYRICA [Suspect]
     Active Substance: PREGABALIN
     Indication: SEIZURE
  9. LYRICA [Suspect]
     Active Substance: PREGABALIN
     Indication: NEURALGIA
  10. PERCOCET [Concomitant]
     Active Substance: ACETAMINOPHEN\OXYCODONE HYDROCHLORIDE
     Indication: ROAD TRAFFIC ACCIDENT
  11. LYRICA [Suspect]
     Active Substance: PREGABALIN
     Indication: PAIN
  12. LYRICA [Suspect]
     Active Substance: PREGABALIN
     Indication: FIBROMYALGIA
     Dosage: UNK, (2, 300 (MG) THREE TIMES A DAY WHICH IS ONLY 6)
  13. GABAPENTIN. [Concomitant]
     Active Substance: GABAPENTIN
     Indication: PAIN
  14. LYRICA [Suspect]
     Active Substance: PREGABALIN
     Indication: ANXIETY
     Dosage: 300 MG, 4X/DAY
     Dates: start: 2005
  15. AMPHETAMINE [Concomitant]
     Active Substance: AMPHETAMINE

REACTIONS (15)
  - Drug withdrawal syndrome [Unknown]
  - Vision blurred [Unknown]
  - Increased appetite [Unknown]
  - Irritability [Unknown]
  - Drug titration error [Unknown]
  - Decreased appetite [Unknown]
  - Drug use disorder [Unknown]
  - Drug withdrawal convulsions [Unknown]
  - Agitation [Unknown]
  - Memory impairment [Unknown]
  - Anxiety [Not Recovered/Not Resolved]
  - Drug prescribing error [Unknown]
  - Pain [Unknown]
  - Insomnia [Unknown]
  - Nausea [Unknown]
